FAERS Safety Report 6484095-X (Version None)
Quarter: 2009Q4

REPORT INFORMATION
  Report Type: 
  Country: None (occurrence: None)
  Receive Date: 20091209
  Receipt Date: 20090924
  Transmission Date: 20100525
  Serious: No
  Sender: FDA-Public Use
  Company Number: US-AMGEN-KDL347802

PATIENT
  Sex: Female
  Weight: 115.8 kg

DRUGS (2)
  1. ENBREL [Suspect]
     Indication: RHEUMATOID ARTHRITIS
     Route: 058
     Dates: start: 20080101, end: 20090402
  2. METHOTREXATE [Concomitant]

REACTIONS (2)
  - MACROCYTOSIS [None]
  - NEUTROPENIA [None]
